FAERS Safety Report 9758542 (Version 1)
Quarter: 2013Q4

REPORT INFORMATION
  Report Type: Spontaneous
  Country: US (occurrence: None)
  Receive Date: 20131216
  Receipt Date: 20131216
  Transmission Date: 20140711
  Serious: No
  Sender: FDA-Public Use
  Company Number: CABO-13002426

PATIENT
  Age: 47 Year
  Sex: Female
  Weight: 60 kg

DRUGS (1)
  1. COMETRIQ [Suspect]
     Indication: THYROID CANCER
     Dosage: 140 MG, QD, ORAL?80 MG, QD, ORAL

REACTIONS (9)
  - Vascular rupture [None]
  - Insomnia [None]
  - Contusion [None]
  - Dysgeusia [None]
  - Nausea [None]
  - Diarrhoea [None]
  - Oral pain [None]
  - Dry skin [None]
  - Vomiting [None]
